FAERS Safety Report 21789899 (Version 1)
Quarter: 2022Q4

REPORT INFORMATION
  Report Type: Spontaneous
  Country: HR (occurrence: HR)
  Receive Date: 20221228
  Receipt Date: 20221228
  Transmission Date: 20230113
  Serious: Yes (Other)
  Sender: FDA-Public Use
  Company Number: None

PATIENT
  Age: 13 Year
  Sex: Male

DRUGS (5)
  1. LORATADINE [Suspect]
     Active Substance: LORATADINE
     Route: 048
     Dates: start: 202211, end: 202211
  2. ACETAMINOPHEN [Suspect]
     Active Substance: ACETAMINOPHEN
     Dosage: 20TBL.X500MG
     Route: 048
     Dates: start: 202211, end: 202211
  3. ALPRAZOLAM [Suspect]
     Active Substance: ALPRAZOLAM
     Route: 048
     Dates: start: 202211, end: 202211
  4. IBUPROFEN [Suspect]
     Active Substance: IBUPROFEN
     Dosage: 10TBL.X200MG
     Route: 048
     Dates: start: 202211, end: 202211
  5. ZOLOFT [Suspect]
     Active Substance: SERTRALINE HYDROCHLORIDE
     Dosage: 20TBL.X50MG
     Route: 048
     Dates: start: 202211, end: 202211

REACTIONS (3)
  - Suicide attempt [Unknown]
  - Vomiting [Unknown]
  - Intentional overdose [Unknown]

NARRATIVE: CASE EVENT DATE: 20221101
